FAERS Safety Report 4897873-5 (Version None)
Quarter: 2006Q1

REPORT INFORMATION
  Report Type: 
  Country: None (occurrence: None)
  Receive Date: 20060201
  Receipt Date: 20060126
  Transmission Date: 20060701
  Serious: Yes (Other)
  Sender: FDA-Public Use
  Company Number: IE-GLAXOSMITHKLINE-B0408428A

PATIENT

DRUGS (1)
  1. ZEFFIX [Suspect]
     Indication: HEPATITIS B

REACTIONS (1)
  - NEUTROPENIA [None]
